FAERS Safety Report 6533694-5 (Version None)
Quarter: 2010Q1

REPORT INFORMATION
  Report Type: 
  Country: None (occurrence: None)
  Receive Date: 20100111
  Receipt Date: 20091231
  Transmission Date: 20100710
  Serious: Yes (Death)
  Sender: FDA-Public Use
  Company Number: US-BAXTER-2009BH019960

PATIENT
  Age: 68 Year
  Sex: Male

DRUGS (4)
  1. DIANEAL [Suspect]
     Indication: PERITONEAL DIALYSIS
     Route: 033
     Dates: end: 20091229
  2. DIANEAL [Suspect]
     Route: 033
     Dates: end: 20091229
  3. EXTRANEAL [Suspect]
     Indication: PERITONEAL DIALYSIS
     Route: 033
     Dates: end: 20091229
  4. EXTRANEAL [Suspect]
     Route: 033
     Dates: end: 20091229

REACTIONS (1)
  - CARDIAC ARREST [None]
